FAERS Safety Report 15396607 (Version 1)
Quarter: 2018Q3

REPORT INFORMATION
  Report Type: Other
  Country: US (occurrence: US)
  Receive Date: 20180918
  Receipt Date: 20180918
  Transmission Date: 20181010
  Serious: No
  Sender: FDA-Public Use
  Company Number: US-LEADIANT BIOSCIENCES INC-2018STPI000217

PATIENT
  Age: 50 Year
  Sex: Male

DRUGS (6)
  1. MATULANE [Suspect]
     Active Substance: PROCARBAZINE HYDROCHLORIDE
     Indication: BRAIN NEOPLASM MALIGNANT
     Dosage: 150 MG, 2 TO 3 CAPSULES DAILY
     Route: 048
  2. ONDANSETRON [Concomitant]
     Active Substance: ONDANSETRON
  3. GABAPENTIN. [Concomitant]
     Active Substance: GABAPENTIN
  4. LORAZEPAM. [Concomitant]
     Active Substance: LORAZEPAM
  5. GLEOSTINE [Concomitant]
     Active Substance: LOMUSTINE
  6. PREDNISONE. [Concomitant]
     Active Substance: PREDNISONE

REACTIONS (1)
  - Urticaria [Not Recovered/Not Resolved]

NARRATIVE: CASE EVENT DATE: 201803
